FAERS Safety Report 6469721-3 (Version None)
Quarter: 2009Q4

REPORT INFORMATION
  Report Type: 
  Country: None (occurrence: None)
  Receive Date: 20091130
  Receipt Date: 20091111
  Transmission Date: 20100525
  Serious: Yes (Other)
  Sender: FDA-Public Use
  Company Number: 2009SP036547

PATIENT
  Age: 14 Year
  Sex: Male

DRUGS (2)
  1. NASONEX [Suspect]
     Indication: RHINITIS ALLERGIC
     Dosage: NAS
     Route: 045
     Dates: start: 20080101, end: 20090101
  2. HIXIZINE (HYDROXYZINE) [Suspect]
     Indication: RHINITIS ALLERGIC
     Dates: start: 20080101, end: 20090101

REACTIONS (4)
  - CONVULSION [None]
  - EYE MOVEMENT DISORDER [None]
  - PHIMOSIS [None]
  - VOMITING [None]
